FAERS Safety Report 20196485 (Version 1)
Quarter: 2021Q4

REPORT INFORMATION
  Report Type: Spontaneous
  Country: US (occurrence: US)
  Receive Date: 20211216
  Receipt Date: 20211216
  Transmission Date: 20220303
  Serious: Yes (Other)
  Sender: FDA-Public Use
  Company Number: US-PRINSTON PHARMACEUTICAL INC.-2021PRN00427

PATIENT
  Age: 25 Year
  Sex: Male

DRUGS (6)
  1. CLONAZEPAM [Suspect]
     Active Substance: CLONAZEPAM
     Indication: Generalised anxiety disorder
     Dosage: 0.25 MG, 1X/DAY
     Route: 065
     Dates: start: 2020, end: 202103
  2. OLANZAPINE [Suspect]
     Active Substance: OLANZAPINE
     Indication: Aggression
     Dosage: 5 MG, 1X/DAY, NIGHTLY
     Route: 065
     Dates: start: 2020, end: 202101
  3. VALPROIC ACID [Concomitant]
     Active Substance: VALPROIC ACID
     Indication: Intermittent explosive disorder
     Dosage: ^TITRATED OVER SEVERAL MONTHS^
     Route: 065
     Dates: start: 202003
  4. VALPROIC ACID [Concomitant]
     Active Substance: VALPROIC ACID
     Indication: Aggression
     Dosage: 250 MG, 2X/DAY
     Route: 065
     Dates: end: 202101
  5. ARIPIPRAZOLE [Concomitant]
     Active Substance: ARIPIPRAZOLE
     Indication: Aggression
     Dosage: UNK
     Route: 065
     Dates: start: 2021, end: 2021
  6. RISPERIDONE [Concomitant]
     Active Substance: RISPERIDONE
     Indication: Aggression
     Dosage: 0.5 MG, 1X/DAY
     Route: 065
     Dates: start: 2021

REACTIONS (1)
  - Parotid gland enlargement [Recovering/Resolving]

NARRATIVE: CASE EVENT DATE: 20210101
